FAERS Safety Report 9216461 (Version 3)
Quarter: 2013Q2

REPORT INFORMATION
  Report Type: Spontaneous
  Country: US (occurrence: None)
  Receive Date: 20130402
  Receipt Date: 20130412
  Transmission Date: 20140414
  Serious: Yes (Hospitalization)
  Sender: FDA-Public Use
  Company Number: 130096

PATIENT
  Age: 76 Year
  Sex: Female

DRUGS (2)
  1. HALFLYTELY AND BISACODYL [Suspect]
     Indication: COLONOSCOPY
     Dosage: 5 MG/2L/1X/PO
     Route: 048
     Dates: start: 20130326
  2. CARDIAC MEDICATIONS [Concomitant]

REACTIONS (7)
  - Chest pain [None]
  - Heart rate increased [None]
  - Feeling hot [None]
  - Palpitations [None]
  - Pain in extremity [None]
  - Dehydration [None]
  - Frequent bowel movements [None]
